FAERS Safety Report 5858077-2 (Version None)
Quarter: 2008Q3

REPORT INFORMATION
  Report Type: 
  Country: None (occurrence: None)
  Receive Date: 20080826
  Receipt Date: 20080814
  Transmission Date: 20090109
  Serious: Yes (Hospitalization)
  Sender: FDA-Public Use
  Company Number: US-ELI_LILLY_AND_COMPANY-US200808003219

PATIENT
  Sex: Female
  Weight: 54.875 kg

DRUGS (10)
  1. TERIPARATIDE [Suspect]
     Indication: OSTEOPOROSIS
     Route: 058
     Dates: start: 20060922
  2. TRAMADOL HCL [Concomitant]
     Indication: ARTERITIS
     Dosage: 50 MG, DAILY (1/D)
  3. REQUIP [Concomitant]
     Indication: POOR QUALITY SLEEP
     Dosage: 0.5 MEQ, DAILY (1/D)
  4. PREDNISONE TAB [Concomitant]
     Indication: ARTERITIS
     Dosage: 20 MG, DAILY (1/D)
  5. LEVOTHYROXINE [Concomitant]
     Indication: HYPOTHYROIDISM
     Dosage: 0.05 MG, DAILY (1/D)
  6. COUMADIN [Concomitant]
     Indication: ATRIAL FIBRILLATION
  7. MULTI-VITAMIN [Concomitant]
     Indication: VITAMIN SUPPLEMENTATION
     Dosage: UNK, DAILY (1/D)
  8. CALCIUM W/VITAMIN D NOS [Concomitant]
     Indication: OSTEOPOROSIS
     Dosage: 500 MG, DAILY (1/D)
  9. BUMEX [Concomitant]
     Indication: CARDIAC FAILURE CONGESTIVE
  10. DILTIAZEM HCL [Concomitant]
     Indication: ATRIAL FIBRILLATION
     Route: 042

REACTIONS (1)
  - FALL [None]
